FAERS Safety Report 13889502 (Version 2)
Quarter: 2018Q3

REPORT INFORMATION
  Report Type: Spontaneous
  Country: US (occurrence: US)
  Receive Date: 20170822
  Receipt Date: 20180731
  Transmission Date: 20181010
  Serious: Yes (Hospitalization)
  Sender: FDA-Public Use
  Company Number: US-ENDO PHARMACEUTICALS INC-2016-007545

PATIENT
  Age: 51 Year
  Sex: Male
  Weight: 90.7 kg

DRUGS (4)
  1. ANDROGEL [Suspect]
     Active Substance: TESTOSTERONE
     Indication: ANDROGEN REPLACEMENT THERAPY
     Dosage: UNK UNKNOWN, DAILY
     Route: 065
     Dates: start: 2010, end: 2012
  2. TESTOPEL [Suspect]
     Active Substance: TESTOSTERONE
     Dosage: 900 MG, UNKNOWN
     Route: 058
     Dates: start: 20121212, end: 20130319
  3. TESTOPEL [Suspect]
     Active Substance: TESTOSTERONE
     Indication: HYPOGONADISM
     Dosage: 750 MG, UNKNOWN
     Route: 058
     Dates: start: 20120725, end: 20121211
  4. TESTOPEL [Suspect]
     Active Substance: TESTOSTERONE
     Dosage: 900 MG, UNKNOWN
     Route: 058
     Dates: start: 20130320, end: 2013

REACTIONS (3)
  - Deep vein thrombosis [Not Recovered/Not Resolved]
  - Pain [Not Recovered/Not Resolved]
  - Prescribed overdose [Recovered/Resolved]

NARRATIVE: CASE EVENT DATE: 20120725
